FAERS Safety Report 18694946 (Version 1)
Quarter: 2021Q1

REPORT INFORMATION
  Report Type: Spontaneous
  Country: US (occurrence: US)
  Receive Date: 20210101
  Receipt Date: 20210101
  Transmission Date: 20210419
  Serious: No
  Sender: FDA-Public Use
  Company Number: None

PATIENT
  Age: 36 Year
  Sex: Female

DRUGS (2)
  1. CHLORHEXIDINE GLUCONATE 0.12% ORAL RINSE [Suspect]
     Active Substance: CHLORHEXIDINE GLUCONATE
     Indication: TOOTH DEPOSIT
     Dosage: ?          QUANTITY:1 15 ML;?
     Route: 048
     Dates: start: 20200716
  2. CHLORHEXIDINE GLUCONATE 0.12% ORAL RINSE [Suspect]
     Active Substance: CHLORHEXIDINE GLUCONATE
     Indication: GINGIVAL DISORDER
     Dosage: ?          QUANTITY:1 15 ML;?
     Route: 048
     Dates: start: 20200716

REACTIONS (3)
  - Oral bacterial infection [None]
  - Recalled product administered [None]
  - Tongue rough [None]
